FAERS Safety Report 7006475-6 (Version None)
Quarter: 2010Q3

REPORT INFORMATION
  Report Type: 
  Country: None (occurrence: None)
  Receive Date: 20100910
  Receipt Date: 20070309
  Transmission Date: 20110219
  Serious: Yes (Other)
  Sender: FDA-Public Use
  Company Number: 2007SP008306

PATIENT
  Age: 21 Year
  Sex: Male

DRUGS (3)
  1. POSACONAZOLE [Suspect]
     Indication: FEBRILE NEUTROPENIA
     Dosage: 400 MG;BID;PO
     Route: 048
  2. VINCRISTINE [Suspect]
     Indication: ACUTE LYMPHOCYTIC LEUKAEMIA
     Dosage: 2 MG;QW
  3. PREDNISONE [Concomitant]

REACTIONS (9)
  - ABASIA [None]
  - AREFLEXIA [None]
  - DRUG INTERACTION [None]
  - MUCOSAL INFLAMMATION [None]
  - MUSCULAR WEAKNESS [None]
  - NEUROTOXICITY [None]
  - ORGANISING PNEUMONIA [None]
  - PERONEAL NERVE PALSY [None]
  - THROMBOCYTOPENIA [None]
